FAERS Safety Report 5075492-8 (Version None)
Quarter: 2006Q3

REPORT INFORMATION
  Report Type: 
  Country: None (occurrence: None)
  Receive Date: 20060809
  Receipt Date: 20060622
  Transmission Date: 20061208
  Serious: Yes (Hospitalization, Other)
  Sender: FDA-Public Use
  Company Number: PHEH2006US08175

PATIENT
  Age: 57 Year
  Sex: Male
  Weight: 218 kg

DRUGS (6)
  1. ENABLEX [Suspect]
     Indication: HYPERTONIC BLADDER
     Dosage: 7.5 MG, UNK
     Dates: start: 20051206, end: 20051201
  2. ENABLEX [Suspect]
     Dosage: 15 MG, QD
     Dates: start: 20051201, end: 20060622
  3. ENABLEX [Suspect]
     Dosage: 15 MG /QDFIVE TIMES A WEEK
     Dates: start: 20060601
  4. LIPITOR                                 /NET/ [Concomitant]
  5. LEVOXYL [Concomitant]
     Dosage: 25 UG, QD
  6. LITHIUM [Suspect]
     Dosage: 300 MG, TID

REACTIONS (12)
  - ABNORMAL BEHAVIOUR [None]
  - AGITATION [None]
  - DEEP VEIN THROMBOSIS [None]
  - DRUG INTERACTION [None]
  - DRY THROAT [None]
  - HEPARIN-INDUCED THROMBOCYTOPENIA [None]
  - INTUBATION [None]
  - OEDEMA PERIPHERAL [None]
  - PSYCHOTIC DISORDER [None]
  - THERAPEUTIC AGENT TOXICITY [None]
  - THERAPY NON-RESPONDER [None]
  - WEAN FROM VENTILATOR [None]
